FAERS Safety Report 23466748 (Version 1)
Quarter: 2024Q1

REPORT INFORMATION
  Report Type: Spontaneous
  Country: US (occurrence: None)
  Receive Date: 20240201
  Receipt Date: 20240201
  Transmission Date: 20240410
  Serious: Yes (Hospitalization)
  Sender: FDA-Public Use
  Company Number: None

PATIENT
  Age: 76 Year
  Sex: Male
  Weight: 94.35 kg

DRUGS (3)
  1. TICE BCG [Suspect]
     Active Substance: BACILLUS CALMETTE-GUERIN SUBSTRAIN TICE LIVE ANTIGEN
  2. ACEBUTOLOL [Concomitant]
  3. ALPRAZOLAM [Concomitant]
     Active Substance: ALPRAZOLAM

REACTIONS (5)
  - Hypotension [None]
  - Nausea [None]
  - Infusion related reaction [None]
  - Presyncope [None]
  - Sepsis [None]

NARRATIVE: CASE EVENT DATE: 20240124
